FAERS Safety Report 17520057 (Version 1)
Quarter: 2020Q1

REPORT INFORMATION
  Report Type: Spontaneous
  Country: US (occurrence: US)
  Receive Date: 20200310
  Receipt Date: 20200310
  Transmission Date: 20200409
  Serious: Yes (Disabling, Other)
  Sender: FDA-Public Use
  Company Number: None

PATIENT
  Age: 40 Year
  Sex: Female
  Weight: 74.25 kg

DRUGS (4)
  1. VENLAFAXINE [Suspect]
     Active Substance: VENLAFAXINE HYDROCHLORIDE
     Indication: ANXIETY
     Dates: start: 20191101
  2. SYNTHROID [Concomitant]
     Active Substance: LEVOTHYROXINE SODIUM
  3. TYLENOL [Concomitant]
     Active Substance: ACETAMINOPHEN
  4. EFFEXOR [Concomitant]
     Active Substance: VENLAFAXINE HYDROCHLORIDE

REACTIONS (11)
  - Nausea [None]
  - Hyperhidrosis [None]
  - Haematoma [None]
  - Drug withdrawal syndrome [None]
  - Product complaint [None]
  - Nightmare [None]
  - Insomnia [None]
  - Night sweats [None]
  - Paraesthesia [None]
  - Increased tendency to bruise [None]
  - Fall [None]

NARRATIVE: CASE EVENT DATE: 20200128
